FAERS Safety Report 7955119-5 (Version None)
Quarter: 2011Q4

REPORT INFORMATION
  Report Type: 
  Country: None (occurrence: None)
  Receive Date: 20111202
  Receipt Date: 20111123
  Transmission Date: 20120403
  Serious: Yes (Other)
  Sender: FDA-Public Use
  Company Number: CHPA2011US016653

PATIENT
  Age: 56 Year
  Sex: Female

DRUGS (3)
  1. VOLTAREN [Suspect]
     Dosage: 4 GRAMS, ONCE
     Route: 061
     Dates: start: 20111128, end: 20111128
  2. VOLTAREN [Suspect]
     Dosage: 4 GRAMS, ONCE
     Route: 061
     Dates: start: 20111123, end: 20111123
  3. VOLTAREN [Suspect]
     Indication: OSTEOARTHRITIS
     Dosage: UNK, PRN
     Route: 061

REACTIONS (2)
  - OSTEOARTHRITIS [None]
  - PAIN [None]
